FAERS Safety Report 25193767 (Version 3)
Quarter: 2025Q2

REPORT INFORMATION
  Report Type: Report from Study
  Country: US (occurrence: US)
  Receive Date: 20250414
  Receipt Date: 20250605
  Transmission Date: 20250717
  Serious: Yes (Other)
  Sender: ABBVIE
  Company Number: US-ABBVIE-6219577

PATIENT
  Age: 68 Year
  Sex: Female

DRUGS (2)
  1. CREON [Suspect]
     Active Substance: PANCRELIPASE AMYLASE\PANCRELIPASE LIPASE\PANCRELIPASE PROTEASE
     Indication: Pancreatic failure
     Dosage: UNIT DOSE: 24000 UNIT, FREQUENCY 3 3 DAYS
     Route: 048
     Dates: start: 20250101
  2. CREON [Suspect]
     Active Substance: PANCRELIPASE AMYLASE\PANCRELIPASE LIPASE\PANCRELIPASE PROTEASE
     Indication: Pancreatic failure
     Route: 048

REACTIONS (15)
  - Pancreatic carcinoma [Unknown]
  - Thrombosis [Unknown]
  - Stomatitis [Unknown]
  - Constipation [Unknown]
  - Weight decreased [Unknown]
  - Nasal dryness [Unknown]
  - Rhinorrhoea [Unknown]
  - Diabetes mellitus [Unknown]
  - Skin ulcer [Unknown]
  - Skin hypertrophy [Unknown]
  - Skin exfoliation [Unknown]
  - Foot and mouth disease [Unknown]
  - Pneumothorax [Unknown]
  - Blister [Unknown]
  - Diarrhoea [Unknown]

NARRATIVE: CASE EVENT DATE: 20250101
